FAERS Safety Report 18255136 (Version 1)
Quarter: 2020Q3

REPORT INFORMATION
  Report Type: Report from Study
  Country: US (occurrence: US)
  Receive Date: 20200910
  Receipt Date: 20200910
  Transmission Date: 20201103
  Serious: Yes (Other)
  Sender: FDA-Public Use
  Company Number: US-JNJFOC-A-US2020-203599

PATIENT
  Age: 48 Year
  Sex: Male
  Weight: 108.96 kg

DRUGS (2)
  1. TADALAFIL. [Suspect]
     Active Substance: TADALAFIL
     Indication: PRODUCT USED FOR UNKNOWN INDICATION
     Route: 067
  2. OPSUMIT [Suspect]
     Active Substance: MACITENTAN
     Indication: PULMONARY ARTERIAL HYPERTENSION
     Dosage: 10 MG, QD
     Route: 048

REACTIONS (7)
  - Parosmia [Unknown]
  - Cholecystectomy [Unknown]
  - Rhinorrhoea [Unknown]
  - Taste disorder [Unknown]
  - Paranasal sinus hypersecretion [Unknown]
  - Multiple allergies [Unknown]
  - Cough [Unknown]

NARRATIVE: CASE EVENT DATE: 20200320
